FAERS Safety Report 21172484 (Version 1)
Quarter: 2022Q3

REPORT INFORMATION
  Report Type: Spontaneous
  Country: US (occurrence: US)
  Receive Date: 20220804
  Receipt Date: 20220804
  Transmission Date: 20221026
  Serious: Yes (Other)
  Sender: FDA-Public Use
  Company Number: US-ORGANON-O2208USA000491

PATIENT
  Age: 63 Year
  Sex: Female
  Weight: 41.2 kg

DRUGS (1)
  1. REMERON [Suspect]
     Active Substance: MIRTAZAPINE
     Dosage: UNK
     Route: 048

REACTIONS (9)
  - Tardive dyskinesia [Unknown]
  - Hypertension [Unknown]
  - Decreased appetite [Unknown]
  - Diarrhoea [Unknown]
  - Fatigue [Unknown]
  - Somnolence [Unknown]
  - Anxiety [Unknown]
  - Back pain [Unknown]
  - Weight increased [Unknown]

NARRATIVE: CASE EVENT DATE: 20220301
